FAERS Safety Report 23447267 (Version 2)
Quarter: 2024Q1

REPORT INFORMATION
  Report Type: Spontaneous
  Country: CO (occurrence: CO)
  Receive Date: 20240126
  Receipt Date: 20240301
  Transmission Date: 20240410
  Serious: No
  Sender: FDA-Public Use
  Company Number: CO-PFIZER INC-PV202400002416

PATIENT
  Age: 9 Year
  Sex: Male

DRUGS (2)
  1. GENOTROPIN [Suspect]
     Active Substance: SOMATROPIN
     Dosage: 0.6 AND 0.8MG, DAILY
     Route: 058
     Dates: start: 20210603
  2. GENOTROPIN [Suspect]
     Active Substance: SOMATROPIN
     Dosage: 0.6 AND 0.8MG, DAILY
     Route: 058
     Dates: end: 202305

REACTIONS (2)
  - Blister [Unknown]
  - Device failure [Unknown]
